FAERS Safety Report 5931846-6 (Version None)
Quarter: 2008Q4

REPORT INFORMATION
  Report Type: 
  Country: None (occurrence: None)
  Receive Date: 20081027
  Receipt Date: 20081015
  Transmission Date: 20090506
  Serious: Yes (Hospitalization)
  Sender: FDA-Public Use
  Company Number: JP-PFIZER INC-2008073376

PATIENT
  Age: 47 Year
  Sex: Male

DRUGS (2)
  1. ZITHROMAX [Suspect]
     Indication: BRONCHITIS
     Dosage: DAILY DOSE:500MG
     Route: 048
     Dates: start: 20080820, end: 20080822
  2. PANSPORIN [Concomitant]
     Route: 042
     Dates: start: 20080820, end: 20080820

REACTIONS (1)
  - MUSCULAR WEAKNESS [None]
